FAERS Safety Report 5347507-0 (Version None)
Quarter: 2007Q2

REPORT INFORMATION
  Report Type: 
  Country: None (occurrence: None)
  Receive Date: 20070606
  Receipt Date: 20070525
  Transmission Date: 20071010
  Serious: Yes (Hospitalization)
  Sender: FDA-Public Use
  Company Number: DE-PURDUE-DEU_2007_0003311

PATIENT
  Age: 62 Year
  Sex: Female

DRUGS (8)
  1. OXY/NALOX CR TABS VS OXY CR TABS [Suspect]
     Indication: PAIN
     Dosage: 80 MG, DAILY
     Route: 048
     Dates: start: 20070410, end: 20070412
  2. PANTOPRAZOLE SODIUM [Suspect]
  3. CITALOPRAM HYDROBROMIDE [Suspect]
  4. RAMIPRIL [Suspect]
  5. CORVATON ^HOECHST^ [Suspect]
  6. ZOCOR [Suspect]
  7. ACETYLSALICYLIC ACID SRT [Suspect]
  8. BISOPROLOL FUMARATE [Suspect]

REACTIONS (1)
  - PANCREATITIS [None]
